FAERS Safety Report 11825034 (Version 2)
Quarter: 2015Q4

REPORT INFORMATION
  Report Type: Report from Study
  Country: US (occurrence: US)
  Receive Date: 20151211
  Receipt Date: 20151217
  Transmission Date: 20160305
  Serious: No
  Sender: FDA-Public Use
  Company Number: US-AMGEN-USASL2015130680

PATIENT
  Age: 42 Year
  Sex: Male

DRUGS (1)
  1. ENBREL [Suspect]
     Active Substance: ETANERCEPT
     Indication: RHEUMATOID ARTHRITIS
     Dosage: UNK
     Route: 065
     Dates: start: 20151125

REACTIONS (15)
  - Injection site discolouration [Unknown]
  - Injection site pain [Unknown]
  - Fatigue [Unknown]
  - Cough [Unknown]
  - Injection site reaction [Unknown]
  - Chest discomfort [Unknown]
  - Headache [Unknown]
  - Skin exfoliation [Unknown]
  - Injection site erythema [Not Recovered/Not Resolved]
  - Dry skin [Unknown]
  - Injection site bruising [Not Recovered/Not Resolved]
  - Anger [Unknown]
  - Frustration [Unknown]
  - Anxiety [Unknown]
  - Abdominal pain [Unknown]

NARRATIVE: CASE EVENT DATE: 2015
